FAERS Safety Report 10214325 (Version 1)
Quarter: 2014Q2

REPORT INFORMATION
  Report Type: Report from Study
  Country: CA (occurrence: CA)
  Receive Date: 20140603
  Receipt Date: 20140603
  Transmission Date: 20141212
  Serious: No
  Sender: FDA-Public Use
  Company Number: CA-JNJFOC-20140515199

PATIENT
  Age: 34 Year
  Sex: Male
  Weight: 133 kg

DRUGS (5)
  1. REMICADE [Suspect]
     Indication: RHEUMATOID ARTHRITIS
     Route: 042
     Dates: start: 20080709
  2. REMICADE [Suspect]
     Indication: CROHN^S DISEASE
     Route: 042
     Dates: start: 20080709
  3. REMICADE [Suspect]
     Indication: PSORIASIS
     Route: 042
     Dates: start: 20080709
  4. LISINOPRIL [Concomitant]
     Route: 048
  5. IMURAN [Concomitant]
     Dosage: TAB 1 INCREASING BY TAB 1 WEEKLY FOR TOTAL OF 4 / DAY
     Route: 065

REACTIONS (2)
  - Pyrexia [Recovered/Resolved]
  - Chest discomfort [Recovered/Resolved]
